FAERS Safety Report 9372036 (Version 1)
Quarter: 2013Q2

REPORT INFORMATION
  Report Type: Spontaneous
  Country: US (occurrence: US)
  Receive Date: 20130627
  Receipt Date: 20130627
  Transmission Date: 20140414
  Serious: Yes (Hospitalization)
  Sender: FDA-Public Use
  Company Number: US-BAYER-2013-078253

PATIENT
  Age: 18 Year
  Sex: Female

DRUGS (3)
  1. YASMIN [Suspect]
  2. MINOCYCLINE [Concomitant]
     Dosage: UNK
     Dates: start: 20081218
  3. TRETINOIN [Concomitant]
     Dosage: UNK
     Dates: start: 20081218

REACTIONS (4)
  - Pulmonary embolism [None]
  - Deep vein thrombosis [None]
  - Pelvic venous thrombosis [None]
  - Thrombophlebitis superficial [None]
